FAERS Safety Report 21670354 (Version 1)
Quarter: 2022Q4

REPORT INFORMATION
  Report Type: Spontaneous
  Country: PL (occurrence: PL)
  Receive Date: 20221201
  Receipt Date: 20221201
  Transmission Date: 20230112
  Serious: Yes (Death, Hospitalization)
  Sender: FDA-Public Use
  Company Number: PL-TEVA-2022-PL-2830889

PATIENT
  Age: 76 Year
  Sex: Female

DRUGS (1)
  1. METHOTREXATE [Suspect]
     Active Substance: METHOTREXATE
     Indication: Product used for unknown indication
     Dosage: 5 MILLIGRAM DAILY; PRESCRIBED DOSAGE WAS METHOTREXATE 15 MG PER WEEK; HOWEVER, THE ACCUMULATED DOSE
     Route: 065

REACTIONS (14)
  - Pancytopenia [Fatal]
  - Pneumonia [Fatal]
  - Skin necrosis [Fatal]
  - Haemorrhage [Fatal]
  - Sepsis [Fatal]
  - Respiratory failure [Fatal]
  - Traumatic haemothorax [Fatal]
  - Cardiac arrest [Fatal]
  - Accidental overdose [Fatal]
  - Toxicity to various agents [Fatal]
  - Incorrect dosage administered [Fatal]
  - Enterococcal infection [Fatal]
  - Stenotrophomonas infection [Fatal]
  - Aspergillus infection [Fatal]
